FAERS Safety Report 5491679-4 (Version None)
Quarter: 2007Q4

REPORT INFORMATION
  Report Type: 
  Country: None (occurrence: None)
  Receive Date: 20071022
  Receipt Date: 20071008
  Transmission Date: 20080405
  Serious: Yes (Hospitalization)
  Sender: FDA-Public Use
  Company Number: US-JNJFOC-20070400044

PATIENT
  Sex: Female
  Weight: 98.88 kg

DRUGS (5)
  1. ULTRAM ER [Suspect]
     Route: 048
  2. ULTRAM ER [Suspect]
     Indication: OSTEOARTHRITIS
     Route: 048
  3. MELOXICAM [Suspect]
     Route: 048
  4. MELOXICAM [Suspect]
     Indication: OSTEOARTHRITIS
     Route: 048
  5. ACETAMINOPHEN [Concomitant]
     Indication: HEADACHE
     Route: 065

REACTIONS (4)
  - CHEST PAIN [None]
  - CHILLS [None]
  - DIZZINESS [None]
  - NAUSEA [None]
